FAERS Safety Report 4335735-2 (Version None)
Quarter: 2004Q2

REPORT INFORMATION
  Report Type: 
  Country: None (occurrence: None)
  Receive Date: 20040409
  Receipt Date: 20040211
  Transmission Date: 20050107
  Serious: Yes (Hospitalization)
  Sender: FDA-Public Use
  Company Number: PHNU2004DE00870

PATIENT
  Sex: Male
  Weight: 73 kg

DRUGS (3)
  1. ESIDRIX [Suspect]
     Route: 065
  2. GLYBURIDE [Concomitant]
     Route: 065
  3. BETA BLOCKING AGENTS [Concomitant]
     Route: 065

REACTIONS (6)
  - AUTOIMMUNE DISORDER [None]
  - BLOOD CREATINE PHOSPHOKINASE INCREASED [None]
  - INFLAMMATION [None]
  - MYOSITIS [None]
  - RHABDOMYOLYSIS [None]
  - VASCULITIS [None]
